FAERS Safety Report 4305553-X (Version None)
Quarter: 2004Q1

REPORT INFORMATION
  Report Type: 
  Country: None (occurrence: None)
  Receive Date: 20040226
  Receipt Date: 20031124
  Transmission Date: 20041129
  Serious: No
  Sender: FDA-Public Use
  Company Number: US-BRISTOL-MYERS SQUIBB COMPANY-12442653

PATIENT
  Age: 33 Year
  Sex: Female
  Weight: 82 kg

DRUGS (6)
  1. ABILIFY [Suspect]
     Indication: SCHIZOID PERSONALITY DISORDER
     Dosage: 20-OCT-2003: INCREASED TO 15 MG/DAY
     Route: 048
     Dates: start: 20031006
  2. ABILIFY [Suspect]
     Indication: HALLUCINATIONS, MIXED
     Dosage: 20-OCT-2003: INCREASED TO 15 MG/DAY
     Route: 048
     Dates: start: 20031006
  3. SEROQUEL [Concomitant]
     Dosage: DECREASED TO 600 MG/DAY
  4. ARTANE [Concomitant]
  5. DEPAKOTE [Concomitant]
  6. KEPPRA [Concomitant]

REACTIONS (3)
  - DYSARTHRIA [None]
  - MUSCULOSKELETAL STIFFNESS [None]
  - TREMOR [None]
